FAERS Safety Report 6334562-4 (Version None)
Quarter: 2009Q3

REPORT INFORMATION
  Report Type: 
  Country: None (occurrence: None)
  Receive Date: 20090831
  Receipt Date: 20090825
  Transmission Date: 20100115
  Serious: Yes (Other)
  Sender: FDA-Public Use
  Company Number: PHHY2009GB36132

PATIENT
  Age: 63 Year
  Sex: Male
  Weight: 81 kg

DRUGS (8)
  1. CYCLOSPORINE [Suspect]
     Indication: PSORIASIS
     Dosage: UNK
     Dates: start: 20020101, end: 20090101
  2. CYCLOSPORINE [Suspect]
     Dosage: 100 MG
     Dates: start: 20090708
  3. CYCLOSPORINE [Suspect]
     Dosage: 300 MG
  4. HUMIRA [Suspect]
     Indication: PSORIASIS
     Dosage: 80 MG
     Route: 058
     Dates: start: 20090616
  5. HUMIRA [Suspect]
     Dosage: 40 MG
     Route: 058
  6. BENDROFLUMETHIAZIDE [Concomitant]
     Indication: BLOOD PRESSURE INCREASED
     Dosage: 25 MG, QD
     Route: 048
  7. CALCIUM [Concomitant]
     Indication: OSTEOPOROSIS
     Dosage: 1 DF, QD
     Route: 048
     Dates: start: 20080625
  8. TRAMADOL [Concomitant]
     Indication: ARTHRITIS
     Dosage: 100 MG, TID
     Route: 048

REACTIONS (8)
  - DRUG HYPERSENSITIVITY [None]
  - EOSINOPHIL COUNT INCREASED [None]
  - MONOCYTE COUNT INCREASED [None]
  - NEUTROPHIL COUNT INCREASED [None]
  - PSORIASIS [None]
  - RASH PRURITIC [None]
  - URTICARIA [None]
  - WHITE BLOOD CELL COUNT INCREASED [None]
